FAERS Safety Report 23854667 (Version 3)
Quarter: 2024Q4

REPORT INFORMATION
  Report Type: Spontaneous
  Country: CA (occurrence: CA)
  Receive Date: 20240514
  Receipt Date: 20241105
  Transmission Date: 20250115
  Serious: Yes (Hospitalization, Other)
  Sender: ALEXION PHARMACEUTICALS
  Company Number: 2024A107169

PATIENT
  Age: 57 Year

DRUGS (9)
  1. NEXIUM [Suspect]
     Active Substance: ESOMEPRAZOLE MAGNESIUM
     Indication: Product used for unknown indication
     Dosage: FREQUENCY: UNK
  2. NEXIUM [Suspect]
     Active Substance: ESOMEPRAZOLE MAGNESIUM
     Dosage: FREQUENCY: UNK
  3. WELIREG [Suspect]
     Active Substance: BELZUTIFAN
     Indication: Von Hippel-Lindau disease
     Dosage: 120 MILLIGRAM, QD
  4. WELIREG [Suspect]
     Active Substance: BELZUTIFAN
     Dosage: 120 MILLIGRAM, QD
  5. WELIREG [Suspect]
     Active Substance: BELZUTIFAN
     Dosage: 120 MILLIGRAM, QD
  6. WELIREG [Suspect]
     Active Substance: BELZUTIFAN
     Dosage: 120 MILLIGRAM, QD
  7. PANTOPRAZOLE SODIUM [Concomitant]
     Active Substance: PANTOPRAZOLE SODIUM
     Indication: Product used for unknown indication
     Dosage: FREQUENCY: UNK
  8. LANSOPRAZOLE [Concomitant]
     Active Substance: LANSOPRAZOLE
     Indication: Product used for unknown indication
     Dosage: 2 EVERY 1 DAYS
  9. LANSOPRAZOLE [Concomitant]
     Active Substance: LANSOPRAZOLE
     Dosage: 2 EVERY 1 DAYS

REACTIONS (6)
  - Anaemia [Recovered/Resolved]
  - Drug interaction [Recovered/Resolved]
  - Fall [Recovered/Resolved]
  - Hydrocephalus [Recovered/Resolved]
  - Vascular graft occlusion [Recovered/Resolved]
  - Wound infection [Recovered/Resolved]
